FAERS Safety Report 10367801 (Version 2)
Quarter: 2014Q3

REPORT INFORMATION
  Report Type: Spontaneous
  Country: US (occurrence: US)
  Receive Date: 20140807
  Receipt Date: 20140910
  Transmission Date: 20150326
  Serious: Yes (Hospitalization, Other)
  Sender: FDA-Public Use
  Company Number: US-BAYER-2014-116269

PATIENT
  Age: 84 Year
  Sex: Male

DRUGS (19)
  1. LASIX [Concomitant]
     Active Substance: FUROSEMIDE
     Dosage: 1 DF, QD
     Dates: start: 20140430, end: 201407
  2. ZYTIGA [Concomitant]
     Active Substance: ABIRATERONE ACETATE
     Dosage: 4 DF, QD
     Route: 048
     Dates: start: 20130801, end: 201407
  3. ATORVASTATIN CALCIUM. [Concomitant]
     Active Substance: ATORVASTATIN CALCIUM
     Dosage: 1 DF, QD
     Route: 048
     Dates: start: 20140319
  4. CALTRATE +D [CALCIUM CARBONATE,VITAMIN D NOS] [Concomitant]
     Dosage: UNK
     Route: 048
  5. XOFIGO [Suspect]
     Active Substance: RADIUM RA-223 DICHLORIDE
     Indication: PROSTATE CANCER
     Dosage: UNK
     Dates: start: 20140321, end: 20140321
  6. XOFIGO [Suspect]
     Active Substance: RADIUM RA-223 DICHLORIDE
     Indication: PROSTATE CANCER
     Dosage: UNK
     Dates: start: 20140418, end: 20140418
  7. IRON [Concomitant]
     Active Substance: IRON
     Dosage: UNK
     Route: 048
  8. XOFIGO [Suspect]
     Active Substance: RADIUM RA-223 DICHLORIDE
     Indication: PROSTATE CANCER
     Dosage: UNK
     Dates: start: 20140219, end: 20140219
  9. XOFIGO [Suspect]
     Active Substance: RADIUM RA-223 DICHLORIDE
     Indication: PROSTATE CANCER
     Dosage: UNK
     Dates: start: 20140613, end: 20140613
  10. SILODOSIN [Concomitant]
     Active Substance: SILODOSIN
     Dosage: 1 DF, QD
     Route: 048
     Dates: start: 20110406
  11. XOFIGO [Suspect]
     Active Substance: RADIUM RA-223 DICHLORIDE
     Indication: PROSTATE CANCER
     Dosage: UNK
     Dates: start: 20140516, end: 20140516
  12. POTASSIUM CHLORIDE. [Concomitant]
     Active Substance: POTASSIUM CHLORIDE
     Dosage: 1 DF, QD
     Route: 048
     Dates: start: 20140319
  13. PREDNISONE. [Concomitant]
     Active Substance: PREDNISONE
     Dosage: 20 MG (2 TABLETS) DAILY
     Route: 048
  14. COUMADIN [Concomitant]
     Active Substance: WARFARIN SODIUM
     Dosage: 1 DF, QD
     Route: 048
     Dates: start: 20140430
  15. AVODART [Concomitant]
     Active Substance: DUTASTERIDE
     Dosage: 1 DF, QD
     Route: 048
     Dates: start: 20130717
  16. PREDNISONE. [Concomitant]
     Active Substance: PREDNISONE
     Dosage: 1 DF, BID
     Route: 048
     Dates: start: 20140430
  17. BACTRIM [Concomitant]
     Active Substance: SULFAMETHOXAZOLE\TRIMETHOPRIM
     Dosage: 1 DF, BID
     Route: 048
     Dates: start: 20140408
  18. VITAMIN D3 [Concomitant]
     Active Substance: CHOLECALCIFEROL
     Dosage: UNK
     Route: 048
  19. LEVAQUIN [Concomitant]
     Active Substance: LEVOFLOXACIN
     Dosage: 750 MG, QD

REACTIONS (4)
  - Haemoglobin decreased [None]
  - Haemorrhage [None]
  - International normalised ratio increased [None]
  - Decreased appetite [None]

NARRATIVE: CASE EVENT DATE: 2014
